FAERS Safety Report 15601191 (Version 2)
Quarter: 2019Q1

REPORT INFORMATION
  Report Type: Spontaneous
  Country: US (occurrence: US)
  Receive Date: 20181109
  Receipt Date: 20190129
  Transmission Date: 20190417
  Serious: No
  Sender: FDA-Public Use
  Company Number: US-PFIZER INC-2018448253

PATIENT
  Age: 70 Year
  Sex: Female

DRUGS (1)
  1. INDOMETHACIN. [Suspect]
     Active Substance: INDOMETHACIN
     Dosage: UNK

REACTIONS (4)
  - Diarrhoea [Unknown]
  - Gastrointestinal disorder [Unknown]
  - Product use issue [Unknown]
  - Drug hypersensitivity [Unknown]
